FAERS Safety Report 7574531-X (Version None)
Quarter: 2011Q2

REPORT INFORMATION
  Report Type: 
  Country: None (occurrence: None)
  Receive Date: 20110627
  Receipt Date: 20080724
  Transmission Date: 20111010
  Serious: Yes (Other)
  Sender: FDA-Public Use
  Company Number: US-BAYER-200813944NA

PATIENT
  Age: 68 Year
  Sex: Male
  Weight: 74.376 kg

DRUGS (23)
  1. MAGNEVIST [Suspect]
     Dosage: 19 ML, ONCE
     Route: 042
     Dates: start: 20061227, end: 20061227
  2. MAGNEVIST [Suspect]
     Route: 042
     Dates: start: 20061228, end: 20061228
  3. MAGNEVIST [Suspect]
     Dosage: 18 ML, ONCE
     Route: 042
     Dates: start: 20070118, end: 20070118
  4. RENAL [VITAMINS NOS] [Concomitant]
     Indication: VITAMIN SUPPLEMENTATION
     Dosage: UNK UNK, QD
  5. PHOSLO [Concomitant]
     Indication: HYPERPHOSPHATAEMIA
     Dosage: 667 MG, TID
  6. LEVAQUIN [Concomitant]
     Dosage: 500 MG, QD
     Route: 048
  7. CIPROFLOXACIN [Concomitant]
     Dosage: 250 MG, Q12H
     Route: 048
  8. METOPROLOL TARTRATE [Concomitant]
     Indication: HYPERTENSION
     Dosage: 25 MG, BID
     Route: 048
  9. NORVASC [Concomitant]
     Dosage: 5 MG, QD
     Route: 048
  10. MAGNEVIST [Suspect]
     Indication: NUCLEAR MAGNETIC RESONANCE IMAGING
     Dosage: UNK
     Dates: start: 20041018, end: 20041018
  11. MAGNEVIST [Suspect]
     Indication: ANGIOGRAM
     Dosage: 20 ML, ONCE
     Route: 042
     Dates: start: 20060813, end: 20060813
  12. MAGNEVIST [Suspect]
     Route: 042
     Dates: start: 20070103, end: 20070103
  13. IRON SUPPLEMENT [Concomitant]
     Indication: BLOOD IRON DECREASED
  14. ZYVOX [Concomitant]
     Dosage: 600 MG, Q12H
     Route: 048
  15. NEPHLEX [Concomitant]
     Dosage: 1 TABLET DAILY
     Route: 048
  16. FOLIC ACID [Concomitant]
     Dosage: 1 MG, QD
  17. VITAMIN TAB [Concomitant]
  18. PLAVIX [Concomitant]
     Dosage: 75 MG, QD
     Route: 048
  19. MAGNEVIST [Suspect]
     Dosage: 20 ML, ONCE
     Route: 042
     Dates: start: 20060811, end: 20060811
  20. EPOGEN [Concomitant]
     Indication: BLOOD COUNT ABNORMAL
     Dosage: UNK
     Dates: start: 20060901
  21. WARFARIN SODIUM [Concomitant]
     Indication: ATRIAL FIBRILLATION
     Dosage: UNK
     Dates: start: 20000101
  22. AMLODIPINE [Concomitant]
  23. ASPIRIN [Concomitant]
     Dosage: 325 MG, QD
     Route: 048

REACTIONS (18)
  - BACK PAIN [None]
  - GAIT DISTURBANCE [None]
  - HYPOAESTHESIA [None]
  - MUSCULOSKELETAL DISCOMFORT [None]
  - NEPHROGENIC SYSTEMIC FIBROSIS [None]
  - SKIN TIGHTNESS [None]
  - MUSCLE TIGHTNESS [None]
  - MUSCULAR WEAKNESS [None]
  - MUSCULOSKELETAL STIFFNESS [None]
  - PRURITUS GENERALISED [None]
  - PRURITUS [None]
  - PAIN [None]
  - JOINT RANGE OF MOTION DECREASED [None]
  - SKIN INDURATION [None]
  - ASTHENIA [None]
  - MOBILITY DECREASED [None]
  - SKIN DISCOLOURATION [None]
  - SCAR [None]
